FAERS Safety Report 12214038 (Version 1)
Quarter: 2016Q1

REPORT INFORMATION
  Report Type: Spontaneous
  Country: US (occurrence: US)
  Receive Date: 20160328
  Receipt Date: 20160328
  Transmission Date: 20160526
  Serious: Yes (Hospitalization, Other)
  Sender: FDA-Public Use
  Company Number: US-MDT-ADR-2016-00347

PATIENT
  Age: 47 Year
  Sex: Female

DRUGS (3)
  1. LIORESAL [Suspect]
     Active Substance: BACLOFEN
     Dosage: 110.09 MCG/DAY
     Route: 037
  2. BACLOFEN. [Suspect]
     Active Substance: BACLOFEN
     Dosage: 10 MG ONE BID-TID
     Route: 048
  3. COMPOUNDED BACLOFEN [Suspect]
     Active Substance: BACLOFEN
     Dosage: 110 MCG/DAY
     Route: 037
     Dates: start: 20151103

REACTIONS (4)
  - Muscle contracture [None]
  - Unevaluable event [None]
  - Medical device site warmth [None]
  - Medical device site bruise [None]
